FAERS Safety Report 7043453-5 (Version None)
Quarter: 2010Q3

REPORT INFORMATION
  Report Type: 
  Country: None (occurrence: None)
  Receive Date: 20100929
  Receipt Date: 20100707
  Transmission Date: 20110219
  Serious: No
  Sender: FDA-Public Use
  Company Number: US-WYE-H16043110

PATIENT
  Age: 49 Year
  Sex: Female
  Weight: 47.22 kg

DRUGS (4)
  1. PRISTIQ [Suspect]
     Indication: DEPRESSION
     Dosage: 50 MG 1X PER 1 DAY, ORAL ; 50 MG 1X PER 1 DAY, ORAL ; 100 MG 1X PER 1 DAY, ORAL
     Route: 048
     Dates: start: 20091101, end: 20100703
  2. PRISTIQ [Suspect]
     Indication: DEPRESSION
     Dosage: 50 MG 1X PER 1 DAY, ORAL ; 50 MG 1X PER 1 DAY, ORAL ; 100 MG 1X PER 1 DAY, ORAL
     Route: 048
     Dates: start: 20100704, end: 20100708
  3. PRISTIQ [Suspect]
     Indication: DEPRESSION
     Dosage: 50 MG 1X PER 1 DAY, ORAL ; 50 MG 1X PER 1 DAY, ORAL ; 100 MG 1X PER 1 DAY, ORAL
     Route: 048
     Dates: start: 20100709, end: 20100722
  4. ACTIVELLA [Concomitant]

REACTIONS (7)
  - AKATHISIA [None]
  - ANXIETY [None]
  - BIPOLAR II DISORDER [None]
  - DRUG EFFECT DECREASED [None]
  - DRUG WITHDRAWAL SYNDROME [None]
  - RESTLESSNESS [None]
  - STRESS [None]
